FAERS Safety Report 4616354-7 (Version None)
Quarter: 2005Q1

REPORT INFORMATION
  Report Type: 
  Country: None (occurrence: None)
  Receive Date: 20050321
  Receipt Date: 20050316
  Transmission Date: 20050727
  Serious: Yes (Hospitalization)
  Sender: FDA-Public Use
  Company Number: USA-2005-0019370

PATIENT
  Age: 49 Year
  Sex: Male

DRUGS (1)
  1. MORPHINE SULFATE [Suspect]
     Indication: PAIN
     Dosage: SEE IMAGE, INTRATHECAL
     Route: 037

REACTIONS (25)
  - AREFLEXIA [None]
  - ASTHENIA [None]
  - BACK PAIN [None]
  - BLOOD IMMUNOGLOBULIN G INCREASED [None]
  - BURNING SENSATION [None]
  - CONSTIPATION [None]
  - CSF PROTEIN INCREASED [None]
  - CSF WHITE BLOOD CELL COUNT INCREASED [None]
  - CSF WHITE BLOOD CELL COUNT POSITIVE [None]
  - FLANK PAIN [None]
  - MONOPLEGIA [None]
  - MUSCLE SPASMS [None]
  - MYELITIS [None]
  - MYELOPATHY [None]
  - NECROSIS [None]
  - NERVOUS SYSTEM DISORDER [None]
  - NUCLEAR MAGNETIC RESONANCE IMAGING ABNORMAL [None]
  - NUCLEAR MAGNETIC RESONANCE IMAGING BRAIN ABNORMAL [None]
  - PAIN [None]
  - PARAESTHESIA [None]
  - PARALYSIS FLACCID [None]
  - PARAPLEGIA [None]
  - SENSORY LOSS [None]
  - SOMNOLENCE [None]
  - SPINAL OSTEOARTHRITIS [None]
